FAERS Safety Report 6044472-8 (Version None)
Quarter: 2009Q1

REPORT INFORMATION
  Report Type: 
  Country: None (occurrence: None)
  Receive Date: 20090120
  Receipt Date: 20090105
  Transmission Date: 20090719
  Serious: Yes (Other)
  Sender: FDA-Public Use
  Company Number: US-AVENTIS-200818135US

PATIENT
  Sex: Female
  Weight: 63 kg

DRUGS (8)
  1. LOVENOX [Suspect]
     Route: 051
     Dates: start: 20080729, end: 20080805
  2. LOVENOX [Suspect]
     Indication: VENOUS THROMBOSIS IN PREGNANCY
     Route: 051
     Dates: start: 20080729, end: 20080805
  3. PREDNISONE [Concomitant]
     Dosage: DOSE: UNK
     Route: 049
  4. LANOLIN CREAM [Concomitant]
     Dosage: DOSE: TOPICALLY
     Dates: start: 20080730
  5. LANOLIN CREAM [Concomitant]
     Indication: DRY SKIN
     Dosage: DOSE: TOPICALLY
     Dates: start: 20080730
  6. TYLENOL (CAPLET) [Concomitant]
     Dosage: DOSE: 325-650
     Dates: start: 20080730
  7. PRENATAL VITAMINS                  /01549301/ [Concomitant]
     Dosage: DOSE QUANTITY: 1
     Dates: start: 20080101
  8. CALCIUM [Concomitant]
     Dosage: DOSE QUANTITY: 1
     Dates: start: 20080101

REACTIONS (5)
  - ALANINE AMINOTRANSFERASE INCREASED [None]
  - ASPARTATE AMINOTRANSFERASE INCREASED [None]
  - LIVER INJURY [None]
  - RASH PRURITIC [None]
  - TRANSAMINASES INCREASED [None]
